FAERS Safety Report 23718400 (Version 2)
Quarter: 2024Q2

REPORT INFORMATION
  Report Type: Spontaneous
  Country: IN (occurrence: IN)
  Receive Date: 20240408
  Receipt Date: 20240502
  Transmission Date: 20240715
  Serious: Yes (Other)
  Sender: FDA-Public Use
  Company Number: IN-PFIZER INC-2019229981

PATIENT
  Age: 77 Year
  Sex: Female

DRUGS (18)
  1. PALBOCICLIB [Suspect]
     Active Substance: PALBOCICLIB
     Indication: Breast cancer metastatic
     Dosage: 100 MG, 1X/DAY
     Route: 048
     Dates: start: 20190410
  2. PALBOCICLIB [Suspect]
     Active Substance: PALBOCICLIB
     Dosage: 125 MG, 1X/DAY
     Route: 048
     Dates: start: 20190417
  3. PALBOCICLIB [Suspect]
     Active Substance: PALBOCICLIB
     Dosage: 125 MG, 1X/DAY
     Route: 048
     Dates: start: 20190717
  4. PALBOCICLIB [Suspect]
     Active Substance: PALBOCICLIB
     Dosage: 100 MG, CYCLIC (D1-D21)
     Route: 048
     Dates: start: 20201227
  5. PALBOCICLIB [Suspect]
     Active Substance: PALBOCICLIB
     Dosage: 100 MG, CYCLIC (D1-D21)
     Route: 048
     Dates: start: 20210122
  6. PALBOCICLIB [Suspect]
     Active Substance: PALBOCICLIB
     Dosage: 100 MG, 1X/DAY
     Route: 048
     Dates: start: 20210625
  7. PALBOCICLIB [Suspect]
     Active Substance: PALBOCICLIB
     Dosage: 100 MG, 1X/DAY
     Route: 048
     Dates: end: 202207
  8. PALBOCICLIB [Suspect]
     Active Substance: PALBOCICLIB
     Dosage: 100 MG, CYCLIC (D1-21)
  9. FULVESTRANT [Concomitant]
     Active Substance: FULVESTRANT
     Dosage: 250 MG
     Route: 030
  10. DOMSTAL [DOMPERIDONE] [Concomitant]
     Dosage: 10 MG, 3X/DAY(1-1-1 )
  11. OCID [OMEPRAZOLE] [Concomitant]
     Dosage: 20 MG, 2X/DAY(1-0-1)
  12. EMSET [Concomitant]
     Dosage: 8 MG, 2X/DAY (1-0-1 X 5 DAYS BEFORE MEALS )
  13. CLOGEN [Concomitant]
     Dosage: UNK, 3X/DAY (1-1-1,5 DAYS AFTER MEALS)
  14. CLOTRIMAZOLE [Concomitant]
     Active Substance: CLOTRIMAZOLE
     Dosage: UNK (CANDID MOUTH PAINT)
  15. FASLODEX [Concomitant]
     Active Substance: FULVESTRANT
     Dosage: 250 MG
     Route: 030
  16. ZOLEDRONIC ACID [Concomitant]
     Active Substance: ZOLEDRONIC ACID
     Dosage: 4 MG
     Route: 042
  17. CCM [Concomitant]
     Dosage: UNK, 1X/DAY
  18. BECOSULES [ASCORBIC ACID;BIOTIN;CALCIUM PANTOTHENATE;CYANOCOBALAMIN;FO [Concomitant]
     Dosage: UNK UNK, 1X/DAY

REACTIONS (9)
  - Deep vein thrombosis [Unknown]
  - White blood cell count decreased [Unknown]
  - Diarrhoea [Unknown]
  - Fatigue [Unknown]
  - Platelet count decreased [Unknown]
  - Haemoglobin decreased [Not Recovered/Not Resolved]
  - Dyspnoea [Unknown]
  - Viral infection [Unknown]
  - Gastrointestinal disorder [Unknown]
